FAERS Safety Report 11376534 (Version 1)
Quarter: 2015Q3

REPORT INFORMATION
  Report Type: Spontaneous
  Country: US (occurrence: US)
  Receive Date: 20150813
  Receipt Date: 20150813
  Transmission Date: 20151125
  Serious: No
  Sender: FDA-Public Use
  Company Number: US-ENDO PHARMACEUTICALS INC.-2015-001875

PATIENT
  Age: 61 Year
  Sex: Male
  Weight: 106.69 kg

DRUGS (1)
  1. XIAFLEX [Suspect]
     Active Substance: COLLAGENASE CLOSTRIDIUM HISTOLYTICUM
     Indication: PEYRONIE^S DISEASE
     Dosage: AS DIRECTED
     Route: 026

REACTIONS (1)
  - Penile haematoma [Not Recovered/Not Resolved]

NARRATIVE: CASE EVENT DATE: 20150602
